FAERS Safety Report 8602668-2 (Version None)
Quarter: 2012Q3

REPORT INFORMATION
  Report Type: 
  Country: None (occurrence: None)
  Receive Date: 20120423
  Receipt Date: 20090604
  Transmission Date: 20120928
  Serious: Yes (Hospitalization, Other)
  Sender: FDA-Public Use
  Company Number: PHEH2009US05738

PATIENT
  Age: 56 Year
  Sex: Female

DRUGS (1)
  1. FEMARA [Suspect]
     Dosage: ORAL
     Route: 048
     Dates: end: 20090503

REACTIONS (2)
  - HAEMORRHAGIC STROKE [None]
  - SUBARACHNOID HAEMORRHAGE [None]
